FAERS Safety Report 7333743-0 (Version None)
Quarter: 2011Q1

REPORT INFORMATION
  Report Type: 
  Country: None (occurrence: None)
  Receive Date: 20110306
  Receipt Date: 20110221
  Transmission Date: 20110831
  Serious: Yes (Hospitalization)
  Sender: FDA-Public Use
  Company Number: DE-MYLANLABS-2011S1003450

PATIENT
  Age: 82 Year
  Sex: Male
  Weight: 80 kg

DRUGS (6)
  1. NITROGLYCERIN [Interacting]
     Indication: CARDIOVASCULAR EVENT PROPHYLAXIS
     Dosage: AM 08.01.11 EINAHME VON INSGESAMT 2X2 HUBE
     Route: 060
     Dates: start: 20050101, end: 20110108
  2. ASS 100 [Concomitant]
     Indication: STENT PLACEMENT
     Route: 048
     Dates: start: 20050101, end: 20110108
  3. HYDROCHLOROTHIAZIDE [Interacting]
     Indication: HYPERTENSION
     Route: 048
  4. TAMSULOSIN HYDROCHLORIDE [Suspect]
     Indication: BENIGN PROSTATIC HYPERPLASIA
     Route: 048
  5. PANTOZOL [Concomitant]
     Indication: REFLUX OESOPHAGITIS
     Route: 048
  6. ATACAND [Interacting]
     Indication: HYPERTENSION
     Route: 048

REACTIONS (2)
  - HYPOTENSION [None]
  - DRUG INTERACTION [None]
